FAERS Safety Report 16046604 (Version 1)
Quarter: 2019Q1

REPORT INFORMATION
  Report Type: Other
  Country: AT (occurrence: AT)
  Receive Date: 20190307
  Receipt Date: 20190307
  Transmission Date: 20190418
  Serious: Yes (Other)
  Sender: FDA-Public Use
  Company Number: AT-APOTEX-2019AP008912

PATIENT
  Age: 22 Year
  Sex: Male
  Weight: 80.6 kg

DRUGS (19)
  1. OLANZAPINE. [Suspect]
     Active Substance: OLANZAPINE
     Indication: PRODUCT USED FOR UNKNOWN INDICATION
     Dosage: 20 MG, QD
     Route: 065
     Dates: start: 20180519, end: 20180519
  2. LORAZEPAM. [Suspect]
     Active Substance: LORAZEPAM
     Indication: PRODUCT USED FOR UNKNOWN INDICATION
     Dosage: 5 MG, QD
     Route: 065
     Dates: start: 20180518, end: 20180518
  3. LORAZEPAM. [Suspect]
     Active Substance: LORAZEPAM
     Dosage: 5.5 MG, QD
     Route: 065
     Dates: start: 20180520, end: 20180520
  4. TRUXAL                             /00012101/ [Suspect]
     Active Substance: CHLORPROTHIXENE
     Indication: PRODUCT USED FOR UNKNOWN INDICATION
     Dosage: 50 MG, QD
     Route: 065
     Dates: start: 20180523, end: 20180523
  5. CISORDINOL                         /00876702/ [Suspect]
     Active Substance: ZUCLOPENTHIXOL
     Dosage: 55 MG, QD
     Route: 065
     Dates: start: 20180523, end: 20180523
  6. CISORDINOL                         /00876702/ [Suspect]
     Active Substance: ZUCLOPENTHIXOL
     Dosage: 25 MG, QD
     Route: 065
     Dates: start: 20180525, end: 20180525
  7. OLANZAPINE. [Suspect]
     Active Substance: OLANZAPINE
     Dosage: 10 MG, QD
     Route: 065
     Dates: start: 20180518, end: 20180518
  8. LORAZEPAM. [Suspect]
     Active Substance: LORAZEPAM
     Dosage: 1.25 MG, QD
     Route: 065
     Dates: start: 20180523, end: 20180523
  9. LORAZEPAM. [Suspect]
     Active Substance: LORAZEPAM
     Dosage: 3.75 MG, QD
     Route: 065
     Dates: start: 20180522, end: 20180522
  10. TRUXAL                             /00012101/ [Suspect]
     Active Substance: CHLORPROTHIXENE
     Dosage: 150 MG, QD
     Route: 065
     Dates: start: 20180520, end: 20180520
  11. CISORDINOL                         /00876702/ [Suspect]
     Active Substance: ZUCLOPENTHIXOL
     Dosage: 100 MG, QD
     Route: 065
     Dates: start: 20180522, end: 20180522
  12. BUPROPION HYDROCHLORIDE. [Suspect]
     Active Substance: BUPROPION HYDROCHLORIDE
     Indication: PRODUCT USED FOR UNKNOWN INDICATION
     Dosage: 150 MG, QD
     Route: 065
     Dates: start: 20180519, end: 20180521
  13. LORAZEPAM. [Suspect]
     Active Substance: LORAZEPAM
     Dosage: 7.25 MG, QD
     Route: 065
     Dates: start: 20180521, end: 20180521
  14. OLANZAPINE. [Suspect]
     Active Substance: OLANZAPINE
     Dosage: 30 MG, QD
     Route: 065
     Dates: start: 20180520
  15. LORAZEPAM. [Suspect]
     Active Substance: LORAZEPAM
     Dosage: 4.5 MG, QD
     Route: 065
     Dates: start: 20180519, end: 20180519
  16. CISORDINOL                         /00876702/ [Suspect]
     Active Substance: ZUCLOPENTHIXOL
     Indication: PRODUCT USED FOR UNKNOWN INDICATION
     Dosage: 20 MG, QD
     Route: 065
     Dates: start: 20180519, end: 20180521
  17. CISORDINOL                         /00876702/ [Suspect]
     Active Substance: ZUCLOPENTHIXOL
     Dosage: 65 MG, QD
     Route: 065
     Dates: start: 20180524, end: 20180524
  18. TEMESTA                            /00273201/ [Suspect]
     Active Substance: LORAZEPAM
     Indication: PRODUCT USED FOR UNKNOWN INDICATION
     Dosage: 5 MG, UNK
     Route: 065
     Dates: end: 20180517
  19. TRUXAL                             /00012101/ [Suspect]
     Active Substance: CHLORPROTHIXENE
     Dosage: 150 MG, QD
     Route: 065
     Dates: start: 20180522, end: 20180522

REACTIONS (2)
  - Incontinence [Recovered/Resolved]
  - Urine output decreased [Recovered/Resolved]

NARRATIVE: CASE EVENT DATE: 20180521
